FAERS Safety Report 5021822-2 (Version None)
Quarter: 2006Q2

REPORT INFORMATION
  Report Type: 
  Country: None (occurrence: None)
  Receive Date: 20060609
  Receipt Date: 20060531
  Transmission Date: 20061013
  Serious: Yes (Disabling, Other)
  Sender: FDA-Public Use
  Company Number: US-JNJFOC-20060600472

PATIENT
  Sex: Female
  Weight: 94.8 kg

DRUGS (8)
  1. REMICADE [Suspect]
     Indication: ANKYLOSING SPONDYLITIS
     Route: 042
  2. SYNTHROID [Concomitant]
  3. ALLOPURINOL [Concomitant]
     Indication: GOUT
  4. ALDACTONE [Concomitant]
     Indication: HYPERTENSION
  5. OGEN [Concomitant]
     Indication: BLOOD OESTROGEN
  6. VITAMIN D [Concomitant]
  7. CALCIUM GLUCONATE [Concomitant]
  8. VITAMIN B COMPLEX CAP [Concomitant]

REACTIONS (3)
  - HYPOAESTHESIA [None]
  - INTERVERTEBRAL DISC PROTRUSION [None]
  - MOTOR DYSFUNCTION [None]
